FAERS Safety Report 7637671-2 (Version None)
Quarter: 2011Q3

REPORT INFORMATION
  Report Type: 
  Country: None (occurrence: None)
  Receive Date: 20110726
  Receipt Date: 20110513
  Transmission Date: 20111222
  Serious: No
  Sender: FDA-Public Use
  Company Number: US-AMGEN-USASP2011025229

PATIENT
  Age: 65 Year
  Sex: Male
  Weight: 86.168 kg

DRUGS (1)
  1. PROCRIT [Suspect]
     Indication: BLOOD COUNT ABNORMAL
     Dosage: UNK
     Route: 058
     Dates: start: 20110513

REACTIONS (1)
  - UNDERDOSE [None]
